FAERS Safety Report 5326183-7 (Version None)
Quarter: 2007Q2

REPORT INFORMATION
  Report Type: 
  Country: None (occurrence: None)
  Receive Date: 20070516
  Receipt Date: 20070503
  Transmission Date: 20071010
  Serious: Yes (Other)
  Sender: FDA-Public Use
  Company Number: GB-ROCHE-497219

PATIENT
  Age: 24 Year
  Sex: Male
  Weight: 65 kg

DRUGS (5)
  1. LARIAM [Suspect]
     Indication: MALARIA PROPHYLAXIS
     Route: 048
     Dates: start: 20060614, end: 20060721
  2. HEPATITIS A VACCINE [Concomitant]
     Dates: start: 20060614, end: 20060614
  3. LEVOTHYROXINE SODIUM [Concomitant]
     Indication: HYPOTHYROIDISM
     Route: 048
     Dates: start: 20010101
  4. YELLOW FEVER VACCINE [Concomitant]
     Dates: start: 20060614, end: 20060614
  5. TYPHOID VACCINE [Concomitant]
     Dates: start: 20060614, end: 20060614

REACTIONS (3)
  - CARDIAC DISORDER [None]
  - GRAND MAL CONVULSION [None]
  - HYPOTHYROIDISM [None]
